FAERS Safety Report 9825227 (Version 1)
Quarter: 2014Q1

REPORT INFORMATION
  Report Type: Spontaneous
  Country: US (occurrence: None)
  Receive Date: 20140115
  Receipt Date: 20140115
  Transmission Date: 20141002
  Serious: Yes (Hospitalization)
  Sender: FDA-Public Use
  Company Number: None

PATIENT
  Age: 80 Year
  Sex: Male
  Weight: 84 kg

DRUGS (1)
  1. AZACITIDINE [Suspect]
     Dates: end: 20131210

REACTIONS (6)
  - Asthenia [None]
  - Dyspnoea [None]
  - Urinary tract infection [None]
  - Acute myocardial infarction [None]
  - Acute respiratory failure [None]
  - Sepsis [None]
